FAERS Safety Report 7392477-7 (Version None)
Quarter: 2011Q2

REPORT INFORMATION
  Report Type: 
  Country: None (occurrence: None)
  Receive Date: 20110404
  Receipt Date: 20110315
  Transmission Date: 20111010
  Serious: No
  Sender: FDA-Public Use
  Company Number: US-BAYER-2011-025296

PATIENT
  Sex: Female
  Weight: 58 kg

DRUGS (2)
  1. ALEVE [Suspect]
     Indication: SCIATICA
     Dosage: BOTTLE COUNT 20S
     Route: 048
     Dates: start: 20110315
  2. ALEVE [Suspect]
     Indication: PAIN

REACTIONS (2)
  - SCIATICA [None]
  - PAIN [None]
